FAERS Safety Report 18748530 (Version 1)
Quarter: 2021Q1

REPORT INFORMATION
  Report Type: Spontaneous
  Country: CN (occurrence: CN)
  Receive Date: 20210115
  Receipt Date: 20210115
  Transmission Date: 20210419
  Serious: Yes (Other)
  Sender: FDA-Public Use
  Company Number: CN-GUERBET-CN-20210003

PATIENT
  Age: 69 Year
  Sex: Female
  Weight: 48.6 kg

DRUGS (1)
  1. OPTIRAY 350 [Suspect]
     Active Substance: IOVERSOL
     Indication: UROGRAM
     Route: 040
     Dates: start: 20201228, end: 20201228

REACTIONS (4)
  - Dysphagia [Recovered/Resolved]
  - Sensation of foreign body [Recovered/Resolved]
  - Laryngeal discomfort [Recovered/Resolved]
  - Laryngeal oedema [Recovered/Resolved]

NARRATIVE: CASE EVENT DATE: 20201228
